FAERS Safety Report 9322014 (Version 4)
Quarter: 2013Q4

REPORT INFORMATION
  Report Type: Spontaneous
  Country: US (occurrence: None)
  Receive Date: 20130529
  Receipt Date: 20131028
  Transmission Date: 20140711
  Serious: Yes (Other)
  Sender: FDA-Public Use
  Company Number: 2013US001612

PATIENT
  Age: 66 Year
  Sex: Female
  Weight: 56.1 kg

DRUGS (13)
  1. PONATINIB [Suspect]
     Indication: CHRONIC MYELOID LEUKAEMIA
     Route: 048
     Dates: start: 20110401
  2. VALIUM (DIAZEPAM) [Concomitant]
  3. SYNTHROID (LEVOTHYROXINE SODIUM) [Concomitant]
  4. COZAAR (LOSARTAN POTASSIUM) [Concomitant]
  5. NORVASC (AMLODIPINE BESILATE) [Concomitant]
  6. ASPIRIN (ASPIRIN) [Concomitant]
  7. NEBIVOLOL (NEBIVOLOL) [Concomitant]
  8. OMEGA (CONVALLARIA MAJALIS, CRATAEGUS LAEVIGATA, PROXYPHYLLINE) [Concomitant]
  9. MULTIVITAMIN (VITAMINS NOS) [Concomitant]
  10. VITAMIN D3 (VITAMIN D3) [Concomitant]
  11. MIRALAX [Concomitant]
  12. AMMONIUM LACTATE (AMMONIUM LACTATE) [Concomitant]
  13. CRESTOR (ROSUVASTATIN CALCIUM) [Concomitant]

REACTIONS (4)
  - Intermittent claudication [None]
  - Peripheral arterial occlusive disease [None]
  - Femoral artery occlusion [None]
  - Wound complication [None]
